FAERS Safety Report 9014193 (Version 2)
Quarter: 2013Q1

REPORT INFORMATION
  Report Type: Spontaneous
  Country: DE (occurrence: DE)
  Receive Date: 20130115
  Receipt Date: 20130121
  Transmission Date: 20140127
  Serious: Yes (Hospitalization, Other)
  Sender: FDA-Public Use
  Company Number: DE-JNJFOC-20130103937

PATIENT
  Sex: Female

DRUGS (2)
  1. DOXORUBICIN HYDROCHLORIDE [Suspect]
     Indication: BREAST CANCER METASTATIC
     Route: 042
  2. MONOCLONAL [Suspect]
     Indication: METASTASES TO BONE
     Dosage: ANTIBODY NOT OTHERWISE SPECIFIED
     Route: 065

REACTIONS (2)
  - Leukocytoclastic vasculitis [Recovered/Resolved]
  - Rash generalised [Recovered/Resolved]
